FAERS Safety Report 6014237-1 (Version None)
Quarter: 2008Q4

REPORT INFORMATION
  Report Type: 
  Country: None (occurrence: None)
  Receive Date: 20081219
  Receipt Date: 20080229
  Transmission Date: 20090506
  Serious: No
  Sender: FDA-Public Use
  Company Number: A0712715A

PATIENT
  Age: 68 Year
  Sex: Male

DRUGS (7)
  1. AVODART [Suspect]
     Dosage: .5MG PER DAY
     Route: 048
     Dates: start: 20070905
  2. DIOVAN [Concomitant]
  3. PRILOSEC [Concomitant]
  4. CASODEX [Concomitant]
  5. SYNTHROID [Concomitant]
  6. FLOMAX [Concomitant]
  7. HORMONE [Concomitant]

REACTIONS (1)
  - DRUG INEFFECTIVE [None]
